FAERS Safety Report 18124559 (Version 1)
Quarter: 2020Q3

REPORT INFORMATION
  Report Type: Spontaneous
  Country: US (occurrence: US)
  Receive Date: 20200807
  Receipt Date: 20200807
  Transmission Date: 20201103
  Serious: No
  Sender: FDA-Public Use
  Company Number: US-PFIZER INC-2020301350

PATIENT
  Age: 46 Year
  Sex: Female

DRUGS (1)
  1. INLYTA [Suspect]
     Active Substance: AXITINIB
     Dosage: 1 MG, 3X/DAY (TAKE 1 TABLET IN THE MORNING AND TWO TABLETS IN THE EVENING)
     Route: 048

REACTIONS (2)
  - Glossitis [Unknown]
  - Toxicity to various agents [Unknown]
